FAERS Safety Report 24036490 (Version 2)
Quarter: 2024Q3

REPORT INFORMATION
  Report Type: Report from Study
  Country: US (occurrence: None)
  Receive Date: 20240701
  Receipt Date: 20240816
  Transmission Date: 20241016
  Serious: Yes (Death, Other)
  Sender: ASTRAZENECA
  Company Number: 2024A150330

PATIENT
  Age: 80 Year
  Sex: Male

DRUGS (2)
  1. ANDEXXA [Suspect]
     Active Substance: ANDEXANET ALFA
     Dosage: LOW DOSE
     Route: 040
  2. APIXABAN [Concomitant]
     Active Substance: APIXABAN
     Indication: Atrial fibrillation

REACTIONS (2)
  - Haemorrhage intracranial [Fatal]
  - Cerebrovascular accident [Fatal]
